FAERS Safety Report 7119170-X (Version None)
Quarter: 2010Q4

REPORT INFORMATION
  Report Type: 
  Country: None (occurrence: None)
  Receive Date: 20101123
  Receipt Date: 20101115
  Transmission Date: 20110411
  Serious: Yes (Death)
  Sender: FDA-Public Use
  Company Number: CA-ROCHE-742421

PATIENT
  Sex: Female
  Weight: 49.9 kg

DRUGS (6)
  1. TRASTUZUMAB [Suspect]
     Indication: BREAST CANCER
     Route: 042
     Dates: start: 20100624, end: 20100728
  2. TRAZODONE [Concomitant]
  3. MORPHINE [Concomitant]
  4. PARIET [Concomitant]
  5. SYNTHROID [Concomitant]
  6. EFFEXOR [Concomitant]

REACTIONS (2)
  - BREAST CANCER [None]
  - MALIGNANT NEOPLASM PROGRESSION [None]
